FAERS Safety Report 9663896 (Version 1)
Quarter: 2013Q4

REPORT INFORMATION
  Report Type: Spontaneous
  Country: US (occurrence: US)
  Receive Date: 20131101
  Receipt Date: 20131101
  Transmission Date: 20140711
  Serious: Yes (Other)
  Sender: FDA-Public Use
  Company Number: CHPA2013US016383

PATIENT
  Age: 46 Year
  Sex: Female

DRUGS (22)
  1. PRIVATE LABEL [Suspect]
     Indication: SMOKING CESSATION THERAPY
     Dosage: 14 MG, UNK
     Route: 062
     Dates: start: 20131025
  2. PRIVATE LABEL [Suspect]
     Dosage: 21 MG, QD
     Route: 062
     Dates: start: 20130929, end: 20131024
  3. PRIVATE LABEL [Suspect]
     Dosage: 21 MG, QD
     Route: 062
  4. CHANTIX [Concomitant]
     Indication: SMOKING CESSATION THERAPY
  5. MOBIC [Concomitant]
     Indication: RHEUMATOID ARTHRITIS
     Dosage: 15 MG, QD
  6. MOBIC [Concomitant]
     Indication: OSTEOARTHRITIS
  7. XANAX [Concomitant]
     Dosage: 1-2 UNK, BID
  8. ALBUTEROL [Concomitant]
     Indication: EMPHYSEMA
     Dosage: UNK, QID
  9. ACTONEL [Concomitant]
     Indication: OSTEOPOROSIS
  10. MAGACE [Concomitant]
     Indication: INCREASED APPETITE
     Dosage: 2 TSP, UNK
  11. TRAZODONE [Concomitant]
     Indication: DEPRESSION
     Dosage: 150 MG, UNK
  12. LORTAB [Concomitant]
     Indication: BACK PAIN
     Dosage: 500 MG, QID
  13. PRO-AIR [Concomitant]
     Dosage: 8.5 MG, PRN
  14. SPIRIVA [Concomitant]
     Dosage: UNK, QD
  15. ESTROPIPATE [Concomitant]
     Indication: HYSTERECTOMY
     Dosage: 2.5 MG, UNK
  16. FLEX-ALL                           /01405101/ [Concomitant]
     Indication: BACK DISORDER
  17. LEVOXYL [Concomitant]
     Dosage: 25 MG, UNK
  18. PROTONIX [Concomitant]
     Dosage: 40 MG, BID
  19. RISPERIDON [Concomitant]
     Dosage: 2 MG, QD
  20. ADVAIR [Concomitant]
     Dosage: UNK, BID
  21. ZOCOR [Concomitant]
     Dosage: 20 MG, QD
  22. PRILOSEC [Concomitant]
     Indication: GASTRIC DISORDER

REACTIONS (11)
  - Confusional state [Unknown]
  - Disturbance in attention [Unknown]
  - Aggression [Unknown]
  - Personality change [Unknown]
  - Crying [Unknown]
  - Onychophagia [Unknown]
  - Increased appetite [Unknown]
  - Anger [Unknown]
  - Treatment noncompliance [Unknown]
  - Overdose [Unknown]
  - Inappropriate schedule of drug administration [Unknown]
